FAERS Safety Report 9491898 (Version 1)
Quarter: 2013Q3

REPORT INFORMATION
  Report Type: Spontaneous
  Country: US (occurrence: US)
  Receive Date: 20130830
  Receipt Date: 20130830
  Transmission Date: 20140515
  Serious: No
  Sender: FDA-Public Use
  Company Number: US-BAYER-2013-104850

PATIENT
  Age: 61 Year
  Sex: Female

DRUGS (1)
  1. ANGELIQ [Suspect]
     Indication: HORMONE REPLACEMENT THERAPY
     Dosage: UNK
     Dates: start: 2009

REACTIONS (2)
  - Off label use [None]
  - Drug administration error [None]
